FAERS Safety Report 7047204-X (Version None)
Quarter: 2010Q4

REPORT INFORMATION
  Report Type: 
  Country: None (occurrence: None)
  Receive Date: 20101015
  Receipt Date: 20101005
  Transmission Date: 20110411
  Serious: Yes (Hospitalization, Other)
  Sender: FDA-Public Use
  Company Number: BR-ABBOTT-10P-020-0662587-00

PATIENT
  Sex: Female
  Weight: 68 kg

DRUGS (8)
  1. HUMIRA [Suspect]
     Indication: RHEUMATOID ARTHRITIS
     Route: 058
     Dates: end: 20091201
  2. HUMIRA [Suspect]
  3. SULFASALAZINE [Concomitant]
     Indication: RHEUMATOID ARTHRITIS
     Route: 048
  4. DIAZEPAM [Concomitant]
     Indication: INSOMNIA
     Route: 048
  5. SETRALINE [Concomitant]
     Indication: DEPRESSION
     Route: 048
  6. METHOTREXATE [Concomitant]
     Indication: RHEUMATOID ARTHRITIS
     Route: 048
  7. NAPROX [Concomitant]
     Indication: PAIN
     Route: 048
  8. LISADOR [Concomitant]
     Indication: PAIN
     Dosage: USING AT HOME

REACTIONS (11)
  - ARTHRALGIA [None]
  - ARTHROPATHY [None]
  - CARTILAGE INJURY [None]
  - DYSARTHRIA [None]
  - FEELING HOT [None]
  - GAIT DISTURBANCE [None]
  - HYPERTENSIVE CRISIS [None]
  - JOINT RANGE OF MOTION DECREASED [None]
  - MUSCULOSKELETAL PAIN [None]
  - OSTEOARTHRITIS [None]
  - PAIN [None]
